FAERS Safety Report 25304876 (Version 1)
Quarter: 2025Q2

REPORT INFORMATION
  Report Type: Spontaneous
  Country: US (occurrence: None)
  Receive Date: 20250512
  Receipt Date: 20250512
  Transmission Date: 20250717
  Serious: No
  Sender: FDA-CTU
  Company Number: None

PATIENT
  Age: 72 Year
  Sex: Female

DRUGS (1)
  1. REPATHA [Suspect]
     Active Substance: EVOLOCUMAB
     Route: 030
     Dates: start: 20250201

REACTIONS (4)
  - Tooth fracture [None]
  - Onychoclasis [None]
  - Oropharyngeal pain [None]
  - Weight increased [None]
